FAERS Safety Report 8272400-3 (Version None)
Quarter: 2012Q2

REPORT INFORMATION
  Report Type: 
  Country: None (occurrence: None)
  Receive Date: 20120410
  Receipt Date: 20120405
  Transmission Date: 20120825
  Serious: Yes (Death)
  Sender: FDA-Public Use
  Company Number: CHPA2012US006499

PATIENT
  Age: 80 Year
  Sex: Female

DRUGS (2)
  1. EXCEDRIN EXTRA STRENGTH TABLETS [Suspect]
     Indication: HEADACHE
     Dosage: 2 DF, SEVERAL TIMES A DAY
     Route: 048
     Dates: start: 19890101, end: 20010101
  2. OXYCONTIN [Concomitant]

REACTIONS (1)
  - DEATH [None]
